FAERS Safety Report 15692252 (Version 1)
Quarter: 2018Q4

REPORT INFORMATION
  Report Type: Spontaneous
  Country: US (occurrence: US)
  Receive Date: 20181205
  Receipt Date: 20181205
  Transmission Date: 20190205
  Serious: No
  Sender: FDA-Public Use
  Company Number: US-EMD SERONO-9056573

PATIENT
  Sex: Female

DRUGS (1)
  1. REBIF [Suspect]
     Active Substance: INTERFERON BETA-1A
     Indication: MULTIPLE SCLEROSIS

REACTIONS (6)
  - Nervousness [Unknown]
  - Loss of personal independence in daily activities [Unknown]
  - Patient dissatisfaction with treatment [Unknown]
  - Impaired work ability [Unknown]
  - Anxiety [Unknown]
  - Depressed mood [Unknown]
